FAERS Safety Report 9168817 (Version 1)
Quarter: 2013Q1

REPORT INFORMATION
  Report Type: Spontaneous
  Country: GB (occurrence: None)
  Receive Date: 20130308
  Receipt Date: 20130308
  Transmission Date: 20140127
  Serious: Yes (Hospitalization)
  Sender: FDA-Public Use
  Company Number: 1620535

PATIENT
  Age: 62 Year
  Sex: Male

DRUGS (3)
  1. CARBOPLATIN [Suspect]
     Indication: SMALL CELL LUNG CANCER
     Route: 042
  2. ETOPOSIDE [Suspect]
     Indication: SMALL CELL LUNG CANCER
  3. ETOPOSIDE [Suspect]
     Indication: SMALL CELL LUNG CANCER

REACTIONS (12)
  - Small intestinal obstruction [None]
  - Gastrointestinal oedema [None]
  - Gastrointestinal necrosis [None]
  - Small intestine ulcer [None]
  - Intestinal fibrosis [None]
  - Oliguria [None]
  - Hypotension [None]
  - Small cell lung cancer [None]
  - Malignant neoplasm progression [None]
  - Performance status decreased [None]
  - Toxicity to various agents [None]
  - Paraneoplastic syndrome [None]
